FAERS Safety Report 8577068-4 (Version None)
Quarter: 2012Q3

REPORT INFORMATION
  Report Type: 
  Country: None (occurrence: None)
  Receive Date: 20120807
  Receipt Date: 20120725
  Transmission Date: 20120928
  Serious: Yes (Hospitalization)
  Sender: FDA-Public Use
  Company Number: DE-ROCHE-1095057

PATIENT
  Sex: Male
  Weight: 85 kg

DRUGS (4)
  1. PREDNISOLONE [Concomitant]
     Indication: RHEUMATOID ARTHRITIS
  2. METHOTREXATE [Concomitant]
     Indication: RHEUMATOID ARTHRITIS
  3. PANTOPRAZOLE [Concomitant]
  4. MABTHERA [Suspect]
     Indication: RHEUMATOID ARTHRITIS

REACTIONS (3)
  - ARTERIOVENOUS GRAFT [None]
  - SPINAL FRACTURE [None]
  - FALL [None]
